FAERS Safety Report 6464554-6 (Version None)
Quarter: 2009Q4

REPORT INFORMATION
  Report Type: 
  Country: None (occurrence: None)
  Receive Date: 20091201
  Receipt Date: 20091119
  Transmission Date: 20100525
  Serious: Yes (Hospitalization, Other)
  Sender: FDA-Public Use
  Company Number: US-PFIZER INC-2009252891

PATIENT
  Sex: Male
  Weight: 81 kg

DRUGS (20)
  1. ZYVOX [Suspect]
     Indication: INFECTION
     Dosage: UNK
     Dates: start: 20090701
  2. LEVOFLOXACIN [Concomitant]
     Dosage: UNK
  3. CLARITHROMYCIN [Concomitant]
     Dosage: UNK
  4. ALBUTEROL [Concomitant]
     Dosage: UNK
  5. ASPIRIN [Concomitant]
     Dosage: UNK
  6. BRIMONIDINE [Concomitant]
     Dosage: UNK
  7. CALCIUM [Concomitant]
     Dosage: UNK
  8. VITAMIN D [Concomitant]
     Dosage: UNK
  9. ENOXAPARIN SODIUM [Concomitant]
     Dosage: UNK
  10. FLUTICASONE [Concomitant]
     Dosage: UNK
  11. LATANOPROST [Concomitant]
     Dosage: UNK
  12. METOPROLOL [Concomitant]
     Dosage: UNK
  13. OMEPRAZOLE [Concomitant]
     Dosage: UNK
  14. OXYCODONE [Concomitant]
     Dosage: UNK
  15. PREDNISONE [Concomitant]
     Dosage: UNK
  16. PYRIDOXINE [Concomitant]
     Dosage: UNK
  17. SENNA [Concomitant]
     Dosage: UNK
  18. TAMSULOSIN [Concomitant]
     Dosage: UNK
  19. TOBRAMYCIN [Concomitant]
     Dosage: UNK
  20. LAMISIL [Concomitant]
     Dosage: UNK

REACTIONS (8)
  - AMPUTATION [None]
  - CONFUSIONAL STATE [None]
  - HALLUCINATION [None]
  - HEPATIC ENZYME INCREASED [None]
  - INSOMNIA [None]
  - MUSCULAR WEAKNESS [None]
  - NIGHTMARE [None]
  - TREMOR [None]
